FAERS Safety Report 10470102 (Version 6)
Quarter: 2015Q3

REPORT INFORMATION
  Report Type: Spontaneous
  Country: US (occurrence: US)
  Receive Date: 20140923
  Receipt Date: 20150902
  Transmission Date: 20151125
  Serious: Yes (Death, Hospitalization, Other)
  Sender: FDA-Public Use
  Company Number: US-MERCK-1409USA010741

PATIENT
  Sex: Male
  Weight: 68.27 kg

DRUGS (1)
  1. JANUVIA [Suspect]
     Active Substance: SITAGLIPTIN PHOSPHATE
     Indication: TYPE 2 DIABETES MELLITUS
     Dosage: 100 MG, QD
     Route: 048
     Dates: start: 20090403, end: 20130518

REACTIONS (7)
  - Metastases to peritoneum [Unknown]
  - Pancreatitis [Unknown]
  - Blood pressure systolic increased [Recovered/Resolved]
  - Hypertension [Unknown]
  - Urinary retention [Recovered/Resolved]
  - Pancreatic carcinoma metastatic [Fatal]
  - Blood glucose increased [Recovered/Resolved]

NARRATIVE: CASE EVENT DATE: 201306
